FAERS Safety Report 8769701 (Version 1)
Quarter: 2012Q4

REPORT INFORMATION
  Report Type: 
  Country: US (occurrence: US)
  Receive Date: 20120905
  Receipt Date: 20120905
  Transmission Date: 20130627
  Serious: No
  Sender: FDA-Public Use
  Company Number: US-JNJFOC-20120710234

PATIENT
  Age: 35 Year
  Sex: Male

DRUGS (3)
  1. DURAGESIC [Suspect]
     Indication: PAIN
     Route: 062
     Dates: start: 20060202
  2. PHENERGAN [Concomitant]
     Indication: NAUSEA
     Route: 065
     Dates: start: 2005
  3. MAXALT [Concomitant]
     Indication: MIGRAINE
     Route: 065
     Dates: start: 2008

REACTIONS (4)
  - Product adhesion issue [Unknown]
  - Product quality issue [Unknown]
  - Drug effect incomplete [Unknown]
  - Incorrect drug administration duration [Unknown]
